FAERS Safety Report 5195859-7 (Version None)
Quarter: 2007Q1

REPORT INFORMATION
  Report Type: 
  Country: None (occurrence: None)
  Receive Date: 20070102
  Receipt Date: 20061228
  Transmission Date: 20070707
  Serious: Yes (Other)
  Sender: FDA-Public Use
  Company Number: US-GLAXOSMITHKLINE-A0630974A

PATIENT
  Age: 77 Year
  Sex: Female

DRUGS (2)
  1. PAXIL CR [Suspect]
     Indication: DEPRESSION
     Dosage: 37.5MG VARIABLE DOSE
     Route: 048
  2. THYROID TAB [Concomitant]

REACTIONS (6)
  - AGGRESSION [None]
  - ANXIETY [None]
  - DIZZINESS [None]
  - PALPITATIONS [None]
  - STOMACH DISCOMFORT [None]
  - TREMOR [None]
